FAERS Safety Report 12657029 (Version 2)
Quarter: 2016Q3

REPORT INFORMATION
  Report Type: Report from Study
  Country: US (occurrence: US)
  Receive Date: 20160816
  Receipt Date: 20160901
  Transmission Date: 20161109
  Serious: Yes (Hospitalization)
  Sender: FDA-Public Use
  Company Number: US-GILEAD-2016-0227414

PATIENT
  Age: 57 Year
  Sex: Male
  Weight: 66.21 kg

DRUGS (1)
  1. LEDIPASVIR/SOFOSBUVIR [Suspect]
     Active Substance: LEDIPASVIR\SOFOSBUVIR
     Indication: HEPATITIS C
     Dosage: 1 DF, UNK
     Route: 048
     Dates: start: 201607

REACTIONS (4)
  - Pain [Unknown]
  - Foot fracture [Unknown]
  - Road traffic accident [Unknown]
  - Wrist fracture [Unknown]

NARRATIVE: CASE EVENT DATE: 20160720
